FAERS Safety Report 7688093-X (Version None)
Quarter: 2011Q3

REPORT INFORMATION
  Report Type: 
  Country: None (occurrence: None)
  Receive Date: 20110817
  Receipt Date: 20110811
  Transmission Date: 20111222
  Serious: Yes (Hospitalization)
  Sender: FDA-Public Use
  Company Number: JP-BRISTOL-MYERS SQUIBB COMPANY-15950181

PATIENT
  Age: 65 Year
  Sex: Male
  Weight: 64 kg

DRUGS (5)
  1. SAXAGLIPTIN [Suspect]
     Indication: TYPE 2 DIABETES MELLITUS
     Dosage: FORMULATION:TABS
     Route: 048
     Dates: start: 20101026
  2. LOXONIN [Concomitant]
     Dosage: FORMU: POULTICE, TABLET ON 17FEB11.
     Dates: start: 20110216
  3. APHTASOLON [Concomitant]
     Dosage: FORMU: OINTMENT
     Dates: start: 20110116
  4. GLUFAST [Concomitant]
     Dosage: TABS
     Dates: start: 20051012
  5. MUCOSTA [Concomitant]
     Dosage: FORMU: TAB
     Dates: start: 20110217

REACTIONS (1)
  - CATARACT [None]
